FAERS Safety Report 7769517-6 (Version None)
Quarter: 2011Q3

REPORT INFORMATION
  Report Type: 
  Country: None (occurrence: None)
  Receive Date: 20110922
  Receipt Date: 20110722
  Transmission Date: 20111222
  Serious: No
  Sender: FDA-Public Use
  Company Number: US-ASTRAZENECA-2011SE44078

PATIENT
  Age: 31 Year
  Sex: Male

DRUGS (9)
  1. LISINOPRIL AND HYDROCHLOROTHIAZIDE [Concomitant]
  2. ATENOLOL [Concomitant]
  3. SEROQUEL [Suspect]
     Indication: SLEEP DISORDER
     Route: 048
     Dates: start: 20090101
  4. KLONOPIN [Concomitant]
  5. DILTIAZEM [Concomitant]
  6. ZOLOFT [Concomitant]
  7. ZITHROMAX [Concomitant]
  8. BUSPAR [Concomitant]
  9. METOPROLOL TARTRATE [Concomitant]

REACTIONS (2)
  - OROPHARYNGEAL PAIN [None]
  - SINUSITIS [None]
